FAERS Safety Report 23682335 (Version 2)
Quarter: 2024Q2

REPORT INFORMATION
  Report Type: Report from Study
  Country: CA (occurrence: CA)
  Receive Date: 20240328
  Receipt Date: 20240514
  Transmission Date: 20240716
  Serious: Yes (Hospitalization, Other)
  Sender: FDA-Public Use
  Company Number: CA-002147023-NVSC2022CA259141

PATIENT
  Sex: Male

DRUGS (2)
  1. ERELZI [Suspect]
     Active Substance: ETANERCEPT-SZZS
     Indication: Rheumatoid arthritis
     Dosage: 50 MG, QW, PRE-FILLED PEN
     Route: 058
     Dates: start: 20220406, end: 20231226
  2. ERELZI [Suspect]
     Active Substance: ETANERCEPT-SZZS
     Dosage: 50MG DOSING FREQUENCY: WEEKLY;WEEKLY
     Route: 058

REACTIONS (8)
  - Haematoma [Unknown]
  - Surgery [Unknown]
  - General physical health deterioration [Unknown]
  - Balance disorder [Unknown]
  - Loss of personal independence in daily activities [Unknown]
  - Dizziness [Unknown]
  - Adverse event [Unknown]
  - Product dose omission issue [Unknown]
